FAERS Safety Report 18530292 (Version 1)
Quarter: 2020Q4

REPORT INFORMATION
  Report Type: Report from Study
  Country: US (occurrence: US)
  Receive Date: 20201120
  Receipt Date: 20201120
  Transmission Date: 20210114
  Serious: Yes (Hospitalization, Other)
  Sender: FDA-Public Use
  Company Number: US-AUROBINDO-AUR-APL-2020-057411

PATIENT
  Age: 21 Year
  Sex: Male

DRUGS (1)
  1. PAROXETINE. [Suspect]
     Active Substance: PAROXETINE
     Indication: PRODUCT USED FOR UNKNOWN INDICATION
     Dosage: UNK
     Route: 065

REACTIONS (8)
  - Serotonin syndrome [Unknown]
  - Toxicity to various agents [Unknown]
  - Muscle rigidity [Unknown]
  - Mental status changes [Unknown]
  - Overdose [Unknown]
  - Vomiting [Unknown]
  - Myoclonus [Unknown]
  - Apnoeic attack [Unknown]
